FAERS Safety Report 7288018-5 (Version None)
Quarter: 2011Q1

REPORT INFORMATION
  Report Type: 
  Country: None (occurrence: None)
  Receive Date: 20110211
  Receipt Date: 20110131
  Transmission Date: 20110831
  Serious: Yes (Hospitalization)
  Sender: FDA-Public Use
  Company Number: PHHY2011US08529

PATIENT
  Age: 12 Year
  Sex: Male

DRUGS (2)
  1. EXJADE [Suspect]
     Dosage: 30MG/KG/DAY
     Route: 048
  2. EXJADE [Suspect]
     Indication: SIDEROBLASTIC ANAEMIA
     Dosage: UNK
     Route: 048
     Dates: start: 20060101

REACTIONS (5)
  - LIVER FUNCTION TEST ABNORMAL [None]
  - RENAL FAILURE ACUTE [None]
  - HAEMATEMESIS [None]
  - COAGULATION TEST ABNORMAL [None]
  - BLOOD CREATININE INCREASED [None]
